FAERS Safety Report 10798859 (Version 1)
Quarter: 2015Q1

REPORT INFORMATION
  Report Type: Report from Study
  Country: US (occurrence: US)
  Receive Date: 20150216
  Receipt Date: 20150216
  Transmission Date: 20150721
  Serious: No
  Sender: FDA-Public Use
  Company Number: US-ABBVIE-14K-163-1235266-00

PATIENT
  Age: 77 Year
  Sex: Male

DRUGS (16)
  1. TAMSULOSIN [Concomitant]
     Active Substance: TAMSULOSIN
     Indication: PRODUCT USED FOR UNKNOWN INDICATION
     Dosage: AT NIGHT
  2. THEOPHYLLINE BRUNEAU [Concomitant]
     Indication: PRODUCT USED FOR UNKNOWN INDICATION
  3. POTASSIUM [Concomitant]
     Active Substance: POTASSIUM
     Indication: PRODUCT USED FOR UNKNOWN INDICATION
  4. MONTELUKAST SODIUM. [Concomitant]
     Active Substance: MONTELUKAST SODIUM
     Indication: HYPERSENSITIVITY
     Dosage: AT BEDTIME
  5. MONTELUKAST SODIUM. [Concomitant]
     Active Substance: MONTELUKAST SODIUM
     Indication: CHRONIC OBSTRUCTIVE PULMONARY DISEASE
  6. OMEPRAZOLE. [Concomitant]
     Active Substance: OMEPRAZOLE
     Indication: PRODUCT USED FOR UNKNOWN INDICATION
  7. CIPROFLOXACIN. [Concomitant]
     Active Substance: CIPROFLOXACIN
     Indication: PROSTATE CANCER
  8. HYDROCORTISONE. [Concomitant]
     Active Substance: HYDROCORTISONE
     Indication: PSORIASIS
  9. BD ULTRA FINE III MINI [Concomitant]
     Indication: HYPERPHAGIA
  10. HUMIRA [Suspect]
     Active Substance: ADALIMUMAB
     Indication: PSORIASIS
     Dates: start: 201210
  11. ATORVASTATIN [Concomitant]
     Active Substance: ATORVASTATIN
     Indication: PRODUCT USED FOR UNKNOWN INDICATION
  12. JANUVIA [Concomitant]
     Active Substance: SITAGLIPTIN PHOSPHATE
     Indication: PRODUCT USED FOR UNKNOWN INDICATION
     Dosage: EVERY MORNING
  13. RAMIPRIL. [Concomitant]
     Active Substance: RAMIPRIL
     Indication: RENAL DISORDER
  14. LANTUS [Concomitant]
     Active Substance: INSULIN GLARGINE
     Indication: PRODUCT USED FOR UNKNOWN INDICATION
     Dosage: EVERY EVENING
  15. MAXIMUM D3 [Concomitant]
     Active Substance: CHOLECALCIFEROL
     Indication: PRODUCT USED FOR UNKNOWN INDICATION
  16. VICTOZA [Concomitant]
     Active Substance: LIRAGLUTIDE
     Indication: PRODUCT USED FOR UNKNOWN INDICATION

REACTIONS (1)
  - Injection site pain [Recovering/Resolving]

NARRATIVE: CASE EVENT DATE: 201210
